FAERS Safety Report 17836443 (Version 2)
Quarter: 2020Q3

REPORT INFORMATION
  Report Type: Report from Study
  Country: None (occurrence: CA)
  Receive Date: 20200529
  Receipt Date: 20200708
  Transmission Date: 20201103
  Serious: Yes (Life-Threatening, Hospitalization)
  Sender: FDA-Public Use
  Company Number: CA-ABBVIE-20K-028-3422171-00

PATIENT
  Sex: Female

DRUGS (5)
  1. JENCYCLA [Concomitant]
     Active Substance: NORETHINDRONE
     Indication: CONTRACEPTION
     Route: 048
  2. LITHIUM. [Concomitant]
     Active Substance: LITHIUM
     Indication: SCHIZOPHRENIA
     Route: 048
  3. FLOVENT [Concomitant]
     Active Substance: FLUTICASONE PROPIONATE
     Indication: ASTHMA
     Route: 048
  4. HUMIRA [Suspect]
     Active Substance: ADALIMUMAB
     Indication: HIDRADENITIS
     Route: 058
     Dates: start: 20190709, end: 20200325
  5. CLOZARIL [Concomitant]
     Active Substance: CLOZAPINE
     Indication: SCHIZOPHRENIA
     Route: 048

REACTIONS (2)
  - Injection site pain [Not Recovered/Not Resolved]
  - Pulmonary thrombosis [Recovered/Resolved]
